FAERS Safety Report 5493555-X (Version None)
Quarter: 2007Q4

REPORT INFORMATION
  Report Type: 
  Country: None (occurrence: None)
  Receive Date: 20071023
  Receipt Date: 20071016
  Transmission Date: 20080405
  Serious: Yes (Hospitalization)
  Sender: FDA-Public Use
  Company Number: US-ELI_LILLY_AND_COMPANY-US200710004179

PATIENT
  Age: 19 Year
  Sex: Female

DRUGS (2)
  1. HUMULIN 70/30 [Suspect]
  2. HUMULIN R [Suspect]

REACTIONS (4)
  - AURICULAR SWELLING [None]
  - BLOOD GLUCOSE DECREASED [None]
  - BLOOD KETONE BODY INCREASED [None]
  - KETOACIDOSIS [None]
